FAERS Safety Report 5711451-7 (Version None)
Quarter: 2008Q2

REPORT INFORMATION
  Report Type: 
  Country: None (occurrence: None)
  Receive Date: 20080421
  Receipt Date: 20080411
  Transmission Date: 20081010
  Serious: Yes (Other)
  Sender: FDA-Public Use
  Company Number: CA-MERCK-0804CAN00082

PATIENT
  Age: 56 Year
  Sex: Female

DRUGS (11)
  1. SINGULAIR [Suspect]
     Route: 048
  2. DILTIAZEM HYDROCHLORIDE [Concomitant]
     Route: 065
  3. ASPIRIN [Concomitant]
     Route: 065
  4. ALBUTEROL [Concomitant]
     Route: 065
  5. RAMIPRIL [Concomitant]
     Route: 065
  6. INDAPAMIDE [Concomitant]
     Route: 065
  7. RANITIDINE [Concomitant]
     Route: 065
  8. NITROGLYCERIN [Concomitant]
     Route: 065
  9. BISOPROLOL [Concomitant]
     Route: 065
  10. NICOTINE [Suspect]
     Route: 065
  11. ATORVASTATIN CALCIUM [Concomitant]
     Route: 065

REACTIONS (5)
  - ASTHENIA [None]
  - CRYING [None]
  - DECREASED APPETITE [None]
  - DEPRESSION [None]
  - VOMITING [None]
